FAERS Safety Report 16624437 (Version 1)
Quarter: 2019Q3

REPORT INFORMATION
  Report Type: Spontaneous
  Country: US (occurrence: US)
  Receive Date: 20190611
  Receipt Date: 20190611
  Transmission Date: 20191004
  Serious: No
  Sender: FDA-Public Use
  Company Number: None

PATIENT

DRUGS (1)
  1. DIVALPROEX 250MG [Suspect]
     Active Substance: DIVALPROEX SODIUM

REACTIONS (1)
  - Drug dispensed to wrong patient [None]
